FAERS Safety Report 25883528 (Version 2)
Quarter: 2025Q4

REPORT INFORMATION
  Report Type: Spontaneous
  Country: EU (occurrence: EU)
  Receive Date: 20251006
  Receipt Date: 20251024
  Transmission Date: 20260117
  Serious: Yes (Hospitalization, Other)
  Sender: TEVA
  Company Number: None

PATIENT
  Age: 39 Year
  Sex: Female
  Weight: 110 kg

DRUGS (10)
  1. ESOMEPRAZOLE [Suspect]
     Active Substance: ESOMEPRAZOLE
     Indication: Product used for unknown indication
     Dosage: 40 MG , QD
     Route: 048
  2. MONTELUKAST [Suspect]
     Active Substance: MONTELUKAST
     Indication: Urticaria chronic
     Dosage: 10 MG, QD
     Route: 048
  3. OMALIZUMAB [Suspect]
     Active Substance: OMALIZUMAB
     Indication: Product used for unknown indication
     Dosage: UNK
     Route: 065
     Dates: end: 20221130
  4. XOLAIR [Suspect]
     Active Substance: OMALIZUMAB
     Indication: Urticaria chronic
     Dosage: 450 MG , TIM
     Route: 058
     Dates: end: 20221130
  5. INFLIXIMAB [Suspect]
     Active Substance: INFLIXIMAB
     Indication: Crohn^s disease
     Dosage: 240 MG, Q2MO, SOLUTION FOR INJECTION IN PRE-FILLED PEN
     Route: 058
  6. FLUTIFORM [Suspect]
     Active Substance: FLUTIFORM
     Indication: Asthma
     Dosage: 2 DOSAGE FORM, Q12H (2 DF, BID, 125 MICROGRAMS/5 MICROGRAMS PER DOSE), INHALATION USE
     Route: 050
  7. CARBOXYMETHYLCELLULOSE SODIUM [Suspect]
     Active Substance: CARBOXYMETHYLCELLULOSE SODIUM
     Indication: Conjunctivitis allergic
     Dosage: UNK
     Route: 031
  8. LEVOCETIRIZINE [Suspect]
     Active Substance: LEVOCETIRIZINE
     Indication: Urticaria chronic
     Dosage: 5 MG , QD
     Route: 048
  9. ISOSPAGLUMIC ACID [Suspect]
     Active Substance: ISOSPAGLUMIC ACID
     Indication: Conjunctivitis allergic
     Dosage: UNK
     Route: 031
  10. MIRTAZAPINE [Suspect]
     Active Substance: MIRTAZAPINE
     Indication: Mixed anxiety and depressive disorder
     Dosage: 22.5 MG, QD
     Route: 048

REACTIONS (2)
  - Gestational diabetes [Recovered/Resolved]
  - Maternal exposure during pregnancy [Unknown]

NARRATIVE: CASE EVENT DATE: 20230327
